FAERS Safety Report 7293634-0 (Version None)
Quarter: 2011Q1

REPORT INFORMATION
  Report Type: 
  Country: None (occurrence: None)
  Receive Date: 20110215
  Receipt Date: 20110207
  Transmission Date: 20110831
  Serious: Yes (Other)
  Sender: FDA-Public Use
  Company Number: A0913406A

PATIENT
  Age: 34 Year
  Sex: Female

DRUGS (2)
  1. TYKERB [Suspect]
     Route: 048
  2. CAPECITABINE [Suspect]
     Dosage: 2000MGM2 SEE DOSAGE TEXT
     Route: 065

REACTIONS (2)
  - DIARRHOEA [None]
  - PALMAR-PLANTAR ERYTHRODYSAESTHESIA SYNDROME [None]
